FAERS Safety Report 8396073-4 (Version None)
Quarter: 2012Q2

REPORT INFORMATION
  Report Type: 
  Country: None (occurrence: None)
  Receive Date: 20120530
  Receipt Date: 20120523
  Transmission Date: 20120825
  Serious: No
  Sender: FDA-Public Use
  Company Number: US-BAYER-2012-051366

PATIENT

DRUGS (1)
  1. GADAVIST [Suspect]
     Dosage: 8 MLS @ 2.5 ML/SEC
     Route: 042
     Dates: start: 20120518, end: 20120518

REACTIONS (2)
  - RASH [None]
  - URTICARIA [None]
